FAERS Safety Report 24621304 (Version 6)
Quarter: 2025Q3

REPORT INFORMATION
  Report Type: Report from Study
  Country: EU (occurrence: EU)
  Receive Date: 20241114
  Receipt Date: 20250810
  Transmission Date: 20251021
  Serious: Yes (Hospitalization, Other)
  Sender: ALEXION PHARMACEUTICALS
  Company Number: EU-ROCHE-2884918

PATIENT
  Age: 66 Year
  Sex: Female
  Weight: 80.4 kg

DRUGS (359)
  1. FASLODEX [Suspect]
     Active Substance: FULVESTRANT
     Indication: Breast cancer metastatic
     Dosage: 500 MILLIGRAM, BID
     Dates: start: 20171002, end: 20171115
  2. FASLODEX [Suspect]
     Active Substance: FULVESTRANT
     Indication: Breast cancer
     Dosage: 500 MILLIGRAM, QMONTH
     Dates: start: 20171116, end: 20191001
  3. ENHERTU [Suspect]
     Active Substance: FAM-TRASTUZUMAB DERUXTECAN-NXKI
     Indication: Breast cancer metastatic
     Route: 065
     Dates: start: 20200814, end: 20201015
  4. ENHERTU [Suspect]
     Active Substance: FAM-TRASTUZUMAB DERUXTECAN-NXKI
     Indication: Breast cancer metastatic
  5. BLEOMYCIN [Suspect]
     Active Substance: BLEOMYCIN SULFATE
     Indication: Breast cancer metastatic
     Dosage: DRUG WAS DISCONTINUED AS PLANNED NUMBER OF CYCLES COMPLETED.
     Dates: end: 20200519
  6. BLEOMYCIN [Suspect]
     Active Substance: BLEOMYCIN SULFATE
     Indication: Breast cancer metastatic
     Dosage: 26.85 MILLIGRAM, QD1 DOSAGE FORM, QD (DRUG WAS DISCONTINUED AS PLANNED NUMBER OF CYCLES COMPLETED)
     Dates: start: 20210105, end: 20210105
  7. BLEOMYCIN [Suspect]
     Active Substance: BLEOMYCIN SULFATE
     Indication: Breast cancer metastatic
     Dosage: 26.85 MILLIGRAM, QD
     Dates: end: 20200519
  8. BLEOMYCIN [Suspect]
     Active Substance: BLEOMYCIN SULFATE
     Indication: HER2 positive breast cancer
     Dosage: START DATE: 05/01/2021; END DATE: 05/01/2021, START DATE: 19/05/2020; END DATE: 19/05/202026.85 MG, QD (DRUG WAS DISCONTINUED AS PLANNED NUMBER OF CYCLES COMPLETED)
     Dates: start: 20200519, end: 20200519
  9. BLEOMYCIN [Suspect]
     Active Substance: BLEOMYCIN SULFATE
     Dosage: 53.7 MILLIGRAM, QD
     Dates: end: 20200519
  10. BLEOMYCIN [Suspect]
     Active Substance: BLEOMYCIN SULFATE
     Dosage: 1 DOSAGE FORM, QD
     Dates: start: 20210105, end: 20210105
  11. XELODA [Suspect]
     Active Substance: CAPECITABINE
     Indication: Breast cancer
     Dosage: 3500 MILLIGRAM, QD
     Dates: end: 20210224
  12. XELODA [Suspect]
     Active Substance: CAPECITABINE
     Indication: Breast cancer metastatic
     Dosage: 3500 MG, QD (MOST RECENT DOSE EVENT PORT A CATH INFECTION:  PRIOR TO THE 08/JAN/2020)
     Dates: start: 20191002, end: 20200107
  13. XELODA [Suspect]
     Active Substance: CAPECITABINE
     Indication: Breast cancer metastatic
     Dosage: 300 MG, QD
     Dates: end: 20200108
  14. XELODA [Suspect]
     Active Substance: CAPECITABINE
     Dosage: 3000 MILLIGRAM, QD
     Dates: start: 20200108, end: 20200421
  15. XELODA [Suspect]
     Active Substance: CAPECITABINE
     Dosage: DAILY FOR 2 WEEKS THEN PAUSE FOR 1 WEEK
     Dates: start: 20201230, end: 20210203
  16. XELODA [Suspect]
     Active Substance: CAPECITABINE
     Dosage: 3500 MILLIGRAM, QD
     Dates: start: 20210210, end: 20210224
  17. XELODA [Suspect]
     Active Substance: CAPECITABINE
  18. XGEVA [Suspect]
     Active Substance: DENOSUMAB
     Indication: Breast cancer metastatic
     Dosage: 120 MILLIGRAM, UNK, FREQUENCY: Q4WK
     Dates: end: 20210210
  19. XGEVA [Suspect]
     Active Substance: DENOSUMAB
     Indication: Breast cancer metastatic
     Dosage: 120 MILLIGRAM, Q4W
     Dates: end: 20210210
  20. XGEVA [Suspect]
     Active Substance: DENOSUMAB
     Indication: Breast cancer metastatic
     Dosage: 120 MG, Q4W
     Dates: start: 20201230, end: 20210210
  21. XGEVA [Suspect]
     Active Substance: DENOSUMAB
     Dosage: ONGOING = NOT CHECKED
     Dates: start: 20170202, end: 20210521
  22. DOXIL [Suspect]
     Active Substance: DOXORUBICIN HYDROCHLORIDE
     Indication: Breast cancer metastatic
     Dosage: 104.4 MILLIGRAM, QD
     Dates: start: 20210608, end: 20210608
  23. DOXIL [Suspect]
     Active Substance: DOXORUBICIN HYDROCHLORIDE
     Indication: Breast cancer metastatic
     Dosage: 104.4 MILLIGRAM, QD
     Dates: end: 20210608
  24. DOXIL [Suspect]
     Active Substance: DOXORUBICIN HYDROCHLORIDE
     Indication: HER2 positive breast cancer
  25. KADCYLA [Suspect]
     Active Substance: ADO-TRASTUZUMAB EMTANSINE
     Indication: Breast cancer metastatic
     Dosage: 270 MILLIGRAM, Q3W
     Dates: start: 20190306, end: 20190909
  26. KADCYLA [Suspect]
     Active Substance: ADO-TRASTUZUMAB EMTANSINE
     Indication: Breast cancer metastatic
     Route: 065
     Dates: start: 20190306, end: 20190909
  27. KADCYLA [Suspect]
     Active Substance: ADO-TRASTUZUMAB EMTANSINE
     Indication: Breast cancer metastatic
     Dosage: 190 MG, ONCE EVERY 3 WK (190 MILLIGRAM, Q3WK MOSTRECENT DOSE PRIOR TO THE EVENTS: 09/JUN/2017)
     Dates: start: 20170224, end: 20170317
  28. KADCYLA [Suspect]
     Active Substance: ADO-TRASTUZUMAB EMTANSINE
     Indication: HER2 positive breast cancer
     Dates: start: 20170519, end: 20170519
  29. NAVELBINE [Suspect]
     Active Substance: VINORELBINE TARTRATE
     Indication: Breast cancer metastatic
     Dosage: 45 MILLIGRAM, Q3W
     Dates: end: 20200722
  30. NAVELBINE [Suspect]
     Active Substance: VINORELBINE TARTRATE
     Indication: Breast cancer metastatic
     Dosage: 45 MILLIGRAM, Q3W
     Dates: end: 20200722
  31. NAVELBINE [Suspect]
     Active Substance: VINORELBINE TARTRATE
     Indication: Breast cancer metastatic
     Dosage: START DATE: 22/04/2020; END DATE: 22/07/2020
     Dates: start: 20200422, end: 20200722
  32. NAVELBINE [Suspect]
     Active Substance: VINORELBINE TARTRATE
     Indication: Breast cancer metastatic
  33. PERJETA [Suspect]
     Active Substance: PERTUZUMAB
     Indication: Breast cancer metastatic
     Dosage: 840 MILLIGRAM, QD
  34. PERJETA [Suspect]
     Active Substance: PERTUZUMAB
     Indication: HER2 positive breast cancer
     Dosage: MOST RECENT DOSE PRIOR TO THE EVENT WORSENING OF BRAIN METASTASES: 17/MAR/2017 MOST RECENT DOSE PRIOR TO THE EVENT LYMPH NODE METASTATIS AXILLA AND PORT A CATH INFECTION: 24/FEB/2017
     Dates: start: 20170224, end: 20170224
  35. PERJETA [Suspect]
     Active Substance: PERTUZUMAB
     Indication: Breast cancer metastatic
     Dosage: 420 MG, QD
     Dates: start: 20170317, end: 20190213
  36. PERJETA [Suspect]
     Active Substance: PERTUZUMAB
     Dosage: 840 MILLIGRAM, QD
     Dates: start: 20200422, end: 20200615
  37. PERJETA [Suspect]
     Active Substance: PERTUZUMAB
     Dosage: 840 MILLIGRAM, QD
     Dates: start: 20210317, end: 20210428
  38. PERJETA [Suspect]
     Active Substance: PERTUZUMAB
     Route: 065
  39. TUCATINIB [Suspect]
     Active Substance: TUCATINIB
     Indication: Breast cancer metastatic
  40. TUCATINIB [Suspect]
     Active Substance: TUCATINIB
     Indication: Breast cancer metastatic
     Dosage: 300 MILLIGRAM, UNK
     Dates: start: 20201230, end: 20210210
  41. TAXOTERE [Suspect]
     Active Substance: DOCETAXEL
     Indication: Breast cancer metastatic
  42. TAXOTERE [Suspect]
     Active Substance: DOCETAXEL
     Indication: Breast cancer metastatic
     Dosage: 190 MILLIGRAM, INTERVAL: 3 WEEK
     Dates: start: 20170224
  43. TAXOTERE [Suspect]
     Active Substance: DOCETAXEL
     Indication: Breast cancer metastatic
     Dosage: 180 MILLIGRAM, INTERVAL: 3 WEEK
     Dates: start: 20170609, end: 20170630
  44. TAXOTERE [Suspect]
     Active Substance: DOCETAXEL
     Dosage: 180 MILLIGRAM, INTERVAL: 3 WEEK
     Dates: start: 20210317, end: 20210428
  45. TAXOTERE [Suspect]
     Active Substance: DOCETAXEL
     Dates: start: 20170410, end: 20170427
  46. TAXOTERE [Suspect]
     Active Substance: DOCETAXEL
     Dates: start: 20170519, end: 20170519
  47. TAXOTERE [Suspect]
     Active Substance: DOCETAXEL
     Dates: start: 20170609, end: 20170630
  48. TAXOTERE [Suspect]
     Active Substance: DOCETAXEL
     Dates: start: 20210317, end: 20210428
  49. TAXOTERE [Suspect]
     Active Substance: DOCETAXEL
  50. TAXOTERE [Suspect]
     Active Substance: DOCETAXEL
     Route: 065
     Dates: start: 20170609, end: 20170630
  51. TAXOTERE [Suspect]
     Active Substance: DOCETAXEL
     Route: 065
     Dates: start: 20170410, end: 20170427
  52. TAXOTERE [Suspect]
     Active Substance: DOCETAXEL
     Route: 065
     Dates: start: 20210317, end: 20210428
  53. TAXOTERE [Suspect]
     Active Substance: DOCETAXEL
     Route: 065
     Dates: start: 20210317, end: 20210428
  54. TAXOTERE [Suspect]
     Active Substance: DOCETAXEL
     Route: 065
     Dates: start: 20170519, end: 20170519
  55. TAXOTERE [Suspect]
     Active Substance: DOCETAXEL
     Route: 065
  56. TYKERB [Suspect]
     Active Substance: LAPATINIB DITOSYLATE
     Indication: Breast cancer metastatic
     Dosage: 1000 MILLIGRAM, QD
     Dates: end: 20200421
  57. TYKERB [Suspect]
     Active Substance: LAPATINIB DITOSYLATE
     Indication: Breast cancer metastatic
     Dosage: 1000 MILLIGRAM, QD
     Dates: start: 20200108, end: 20200421
  58. TYKERB [Suspect]
     Active Substance: LAPATINIB DITOSYLATE
     Indication: Breast cancer metastatic
     Dosage: 1250 MG, QD (MOST RECENT DOSE PRIOR TO THE EVENT LYMPH NODE METASTATIS AXILLA AND PORT A CATH INFECTION: 08/JAN/2020)
     Dates: start: 20191002, end: 20200107
  59. TYKERB [Suspect]
     Active Substance: LAPATINIB DITOSYLATE
     Indication: Breast cancer
     Dosage: 100 MG, QD
     Dates: start: 20200108, end: 20200421
  60. CARBOXYMETHYLCELLULOSE SODIUM [Suspect]
     Active Substance: CARBOXYMETHYLCELLULOSE SODIUM
     Route: 065
  61. CARBOXYMETHYLCELLULOSE SODIUM [Suspect]
     Active Substance: CARBOXYMETHYLCELLULOSE SODIUM
     Route: 065
  62. CARBOXYMETHYLCELLULOSE SODIUM [Suspect]
     Active Substance: CARBOXYMETHYLCELLULOSE SODIUM
     Route: 065
     Dates: start: 20210105, end: 20210413
  63. DOXORUBICIN HYDROCHLORIDE [Suspect]
     Active Substance: DOXORUBICIN HYDROCHLORIDE
     Indication: Breast cancer metastatic
     Dosage: 104.4 MILLIGRAM, QD
     Dates: start: 20210608
  64. DOXORUBICIN HYDROCHLORIDE [Suspect]
     Active Substance: DOXORUBICIN HYDROCHLORIDE
     Dosage: 104.4 MILLIGRAM, QD
     Dates: start: 20210608, end: 20210608
  65. DOXORUBICIN HYDROCHLORIDE [Suspect]
     Active Substance: DOXORUBICIN HYDROCHLORIDE
     Dates: end: 20210608
  66. PEGFILGRASTIM [Suspect]
     Active Substance: PEGFILGRASTIM
     Indication: Product used for unknown indication
     Route: 065
     Dates: start: 20210610, end: 20210610
  67. TUCATINIB [Suspect]
     Active Substance: TUCATINIB
     Indication: Breast cancer metastatic
     Dosage: 300 MG, BID (0.5 DAY)
     Dates: start: 20201230, end: 20210210
  68. ACETAMINOPHEN [Suspect]
     Active Substance: ACETAMINOPHEN
     Indication: Pseudomonal sepsis
     Route: 065
     Dates: start: 20210622, end: 20210622
  69. ACETAMINOPHEN [Suspect]
     Active Substance: ACETAMINOPHEN
     Indication: Product used for unknown indication
     Route: 065
  70. ACETAMINOPHEN [Suspect]
     Active Substance: ACETAMINOPHEN
     Route: 065
     Dates: start: 20200506, end: 20210622
  71. ACETAMINOPHEN [Suspect]
     Active Substance: ACETAMINOPHEN
     Route: 065
     Dates: start: 20200506, end: 20210622
  72. ACETAMINOPHEN [Suspect]
     Active Substance: ACETAMINOPHEN
     Route: 065
     Dates: end: 20210622
  73. ADRIACIN [Suspect]
     Active Substance: DOXORUBICIN HYDROCHLORIDE
     Indication: Breast cancer metastatic
     Dosage: 104.4 MG, QD
     Route: 065
     Dates: start: 20210608, end: 20210608
  74. HERCEPTIN [Suspect]
     Active Substance: TRASTUZUMAB
     Indication: Product used for unknown indication
     Dosage: 462 MILLIGRAM, Q3W
     Dates: end: 20190213
  75. HERCEPTIN [Suspect]
     Active Substance: TRASTUZUMAB
     Dosage: 414 MILLIGRAM, Q3W
     Dates: start: 20170609, end: 20170630
  76. HERCEPTIN [Suspect]
     Active Substance: TRASTUZUMAB
     Dosage: 468 MILLIGRAM, QD
     Dates: start: 20170720, end: 20170720
  77. HERCEPTIN [Suspect]
     Active Substance: TRASTUZUMAB
     Dates: start: 20170410, end: 20170427
  78. HERCEPTIN [Suspect]
     Active Substance: TRASTUZUMAB
     Dosage: 560 MILLIGRAM, Q3W
     Dates: start: 20201230, end: 20210210
  79. HERCEPTIN [Suspect]
     Active Substance: TRASTUZUMAB
     Dosage: 408 MILLIGRAM, Q3W
     Dates: start: 20210317, end: 20210428
  80. HERCEPTIN [Suspect]
     Active Substance: TRASTUZUMAB
     Dosage: 540 MILLIGRAM, Q3W
     Dates: start: 20200422, end: 20200615
  81. HERCEPTIN [Suspect]
     Active Substance: TRASTUZUMAB
     Dosage: 432 MILLIGRAM, QD
     Dates: start: 20170519, end: 20170519
  82. HERCEPTIN [Suspect]
     Active Substance: TRASTUZUMAB
     Dosage: 624 MILLIGRAM, QD
     Dates: start: 20170224, end: 20170224
  83. HERCEPTIN [Suspect]
     Active Substance: TRASTUZUMAB
     Dosage: 462 MILLIGRAM, Q3W
     Dates: start: 20170810, end: 20190213
  84. HERCEPTIN [Suspect]
     Active Substance: TRASTUZUMAB
  85. Halset [Concomitant]
     Indication: Cough
     Dates: start: 20210611, end: 20210615
  86. ZOFRAN [Concomitant]
     Active Substance: ONDANSETRON HYDROCHLORIDE
     Indication: Gastrointestinal disorder
     Dates: start: 20210612, end: 20210616
  87. ZOFRAN [Concomitant]
     Active Substance: ONDANSETRON HYDROCHLORIDE
     Indication: Product used for unknown indication
     Route: 065
     Dates: start: 20210611, end: 20210612
  88. Leukichtan [Concomitant]
     Indication: Product used for unknown indication
  89. Leukichtan [Concomitant]
     Indication: Product used for unknown indication
     Dates: start: 20200430, end: 20200515
  90. Leukichtan [Concomitant]
     Dates: start: 20200430, end: 20200515
  91. Oleovit [Concomitant]
     Dosage: 30 GTT DROPS, QW
     Dates: end: 20210615
  92. Oleovit [Concomitant]
     Dosage: 30 DROP, ONCE EVERY 1 WK,1/12 MILLILITRE
     Dates: start: 20170329, end: 20210615
  93. Neriforte [Concomitant]
     Indication: Skin fissures
  94. Neriforte [Concomitant]
     Indication: Skin fissures
     Dates: start: 20200430, end: 20200515
  95. Neriforte [Concomitant]
     Dates: start: 20200430, end: 20200515
  96. Neriforte [Concomitant]
  97. Scottopect [Concomitant]
     Indication: Cough
     Dates: start: 20210611, end: 20210613
  98. Scottopect [Concomitant]
     Dates: start: 20210611, end: 20210613
  99. Scottopect [Concomitant]
     Dates: start: 20210611, end: 20210613
  100. Cal [Concomitant]
  101. MORPHINE HYDROCHLORIDE [Concomitant]
     Active Substance: MORPHINE HYDROCHLORIDE
     Indication: Dyspnoea
     Dates: start: 20210616, end: 20210623
  102. EDOXABAN TOSYLATE [Concomitant]
     Active Substance: EDOXABAN TOSYLATE
  103. EDOXABAN TOSYLATE [Concomitant]
     Active Substance: EDOXABAN TOSYLATE
     Dates: start: 20200613, end: 20210611
  104. EDOXABAN TOSYLATE [Concomitant]
     Active Substance: EDOXABAN TOSYLATE
     Dates: start: 20191120, end: 20200608
  105. EDOXABAN TOSYLATE [Concomitant]
     Active Substance: EDOXABAN TOSYLATE
     Dates: start: 20200613, end: 20210611
  106. MORPHINE [Concomitant]
     Active Substance: MORPHINE
     Indication: Dyspnoea
     Dates: start: 20210616, end: 20210623
  107. MORPHINE [Concomitant]
     Active Substance: MORPHINE
     Indication: Dyspnoea
     Dates: start: 20210521, end: 20210616
  108. DEXAMETHASONE [Concomitant]
     Active Substance: DEXAMETHASONE
     Indication: Brain oedema
     Dates: start: 20170104, end: 20170106
  109. DEXAMETHASONE [Concomitant]
     Active Substance: DEXAMETHASONE
     Indication: Product used for unknown indication
     Route: 065
     Dates: start: 20170107, end: 20170108
  110. DEXAMETHASONE [Concomitant]
     Active Substance: DEXAMETHASONE
     Indication: Product used for unknown indication
     Dates: start: 20170104, end: 20170106
  111. DEXAMETHASONE [Concomitant]
     Active Substance: DEXAMETHASONE
     Dates: start: 20200609, end: 20200609
  112. DEXAMETHASONE [Concomitant]
     Active Substance: DEXAMETHASONE
     Dates: start: 20210614, end: 20210623
  113. PANTOPRAZOLE [Concomitant]
     Active Substance: PANTOPRAZOLE
     Indication: Gastrointestinal disorder
     Dates: start: 20210618, end: 20210623
  114. PANTOPRAZOLE [Concomitant]
     Active Substance: PANTOPRAZOLE
     Dates: start: 20210608, end: 20210610
  115. PANTOPRAZOLE [Concomitant]
     Active Substance: PANTOPRAZOLE
     Dates: start: 20210317, end: 20210623
  116. PANTOPRAZOLE [Concomitant]
     Active Substance: PANTOPRAZOLE
     Dates: start: 20210317, end: 20210607
  117. PANTOPRAZOLE [Concomitant]
     Active Substance: PANTOPRAZOLE
     Dates: start: 20210618, end: 20210623
  118. PANTOPRAZOLE [Concomitant]
     Active Substance: PANTOPRAZOLE
     Dates: start: 20210608, end: 20210610
  119. PANTOPRAZOLE [Concomitant]
     Active Substance: PANTOPRAZOLE
     Dates: start: 20210317, end: 20210607
  120. PANTOPRAZOLE [Concomitant]
     Active Substance: PANTOPRAZOLE
     Dates: start: 20210618, end: 20210623
  121. Paspertin [Concomitant]
     Indication: Gastrointestinal disorder
     Dates: start: 20210608, end: 20210610
  122. Paspertin [Concomitant]
     Dates: start: 20210611, end: 20210623
  123. Paspertin [Concomitant]
     Route: 065
     Dates: start: 20200506, end: 20201212
  124. DRONABINOL [Concomitant]
     Active Substance: DRONABINOL
     Indication: Gastrointestinal disorder
     Route: 065
     Dates: start: 20210608, end: 20210612
  125. DRONABINOL [Concomitant]
     Active Substance: DRONABINOL
     Dates: start: 20210608, end: 20210612
  126. ONDANSETRON [Concomitant]
     Active Substance: ONDANSETRON
     Indication: Gastrointestinal disorder
     Dates: start: 20210608, end: 20210610
  127. ONDANSETRON [Concomitant]
     Active Substance: ONDANSETRON
     Dates: start: 20210608, end: 20210610
  128. ONDANSETRON [Concomitant]
     Active Substance: ONDANSETRON
     Dates: start: 20210608, end: 20210610
  129. POLYETHYLENE GLYCOL 3350\POTASSIUM CHLORIDE\SODIUM BICARBONATE\SODIUM [Concomitant]
     Active Substance: POLYETHYLENE GLYCOL 3350\POTASSIUM CHLORIDE\SODIUM BICARBONATE\SODIUM CHLORIDE
     Indication: Product used for unknown indication
     Dates: start: 20210608, end: 20210616
  130. POLYETHYLENE GLYCOL 3350\POTASSIUM CHLORIDE\SODIUM BICARBONATE\SODIUM [Concomitant]
     Active Substance: POLYETHYLENE GLYCOL 3350\POTASSIUM CHLORIDE\SODIUM BICARBONATE\SODIUM CHLORIDE
     Indication: Product used for unknown indication
     Dates: start: 20170709, end: 20170709
  131. POLYETHYLENE GLYCOL 3350\POTASSIUM CHLORIDE\SODIUM BICARBONATE\SODIUM [Concomitant]
     Active Substance: POLYETHYLENE GLYCOL 3350\POTASSIUM CHLORIDE\SODIUM BICARBONATE\SODIUM CHLORIDE
     Dates: start: 20210608, end: 20210616
  132. POLYETHYLENE GLYCOL 3350\POTASSIUM CHLORIDE\SODIUM BICARBONATE\SODIUM [Concomitant]
     Active Substance: POLYETHYLENE GLYCOL 3350\POTASSIUM CHLORIDE\SODIUM BICARBONATE\SODIUM CHLORIDE
     Dates: start: 20210608, end: 20210616
  133. BUTYLSCOPOLAMINE BROMIDE [Concomitant]
     Active Substance: BUTYLSCOPOLAMINE BROMIDE
     Indication: Gastrointestinal disorder
     Dates: start: 20210618, end: 20210618
  134. BUTYLSCOPOLAMINE BROMIDE [Concomitant]
     Active Substance: BUTYLSCOPOLAMINE BROMIDE
     Dates: start: 20210618, end: 20210618
  135. BUTYLSCOPOLAMINE BROMIDE [Concomitant]
     Active Substance: BUTYLSCOPOLAMINE BROMIDE
     Dates: start: 20210618, end: 20210618
  136. BETAMETHASONE DIPROPIONATE [Concomitant]
     Active Substance: BETAMETHASONE DIPROPIONATE
     Indication: Eczema
  137. BETAMETHASONE DIPROPIONATE [Concomitant]
     Active Substance: BETAMETHASONE DIPROPIONATE
     Dates: start: 20191122, end: 20191215
  138. Aceclofenac and paracetamol [Concomitant]
     Dates: start: 20210622, end: 20210622
  139. ZIEXTENZO [Concomitant]
     Active Substance: PEGFILGRASTIM-BMEZ
     Dates: start: 20210610, end: 20210610
  140. MORPHINE SULFATE [Concomitant]
     Active Substance: MORPHINE SULFATE
     Indication: Dyspnoea
  141. MORPHINE SULFATE [Concomitant]
     Active Substance: MORPHINE SULFATE
     Indication: Dyspnoea
     Dates: start: 20210521, end: 20210616
  142. MORPHINE SULFATE [Concomitant]
     Active Substance: MORPHINE SULFATE
     Indication: Dyspnoea
     Dates: start: 20210616, end: 20210623
  143. Paracodin [Concomitant]
     Indication: Cough
  144. Paracodin [Concomitant]
     Dates: start: 20210608, end: 20210610
  145. Paracodin [Concomitant]
     Dates: start: 20210428, end: 20210615
  146. Paracodin [Concomitant]
     Dates: start: 20170708, end: 20170709
  147. Paracodin [Concomitant]
     Route: 065
     Dates: start: 20210428, end: 20210615
  148. PREGABALIN [Concomitant]
     Active Substance: PREGABALIN
     Indication: Product used for unknown indication
  149. PREGABALIN [Concomitant]
     Active Substance: PREGABALIN
     Indication: Product used for unknown indication
     Dates: start: 20190821
  150. PREGABALIN [Concomitant]
     Active Substance: PREGABALIN
     Route: 065
     Dates: start: 20190821, end: 20210616
  151. PREGABALIN [Concomitant]
     Active Substance: PREGABALIN
     Dosage: 25 MG, QD
     Dates: start: 20170428, end: 20180123
  152. PREGABALIN [Concomitant]
     Active Substance: PREGABALIN
     Dates: start: 20190821, end: 20210616
  153. Ponveridol [Concomitant]
     Indication: Gastrointestinal disorder
     Dates: start: 20210618, end: 20210623
  154. Ponveridol [Concomitant]
     Dates: start: 20210618, end: 20210623
  155. Ponveridol [Concomitant]
     Dates: start: 20210618, end: 20210623
  156. Vitamax Vitamin C [Concomitant]
     Indication: Gastrointestinal disorder
     Dates: start: 20210611, end: 20210614
  157. Cal c vita [Concomitant]
  158. Cal c vita [Concomitant]
     Dates: start: 20170203, end: 20210612
  159. HYDROMORPHONE HYDROCHLORIDE [Concomitant]
     Active Substance: HYDROMORPHONE HYDROCHLORIDE
     Dates: start: 20210611, end: 20210615
  160. HYDROMORPHONE HYDROCHLORIDE [Concomitant]
     Active Substance: HYDROMORPHONE HYDROCHLORIDE
     Dates: start: 20210611, end: 20210615
  161. HYDROMORPHONE HYDROCHLORIDE [Concomitant]
     Active Substance: HYDROMORPHONE HYDROCHLORIDE
     Dates: start: 20210611, end: 20210615
  162. EUTHYROX [Concomitant]
     Active Substance: LEVOTHYROXINE SODIUM
  163. EUTHYROX [Concomitant]
     Active Substance: LEVOTHYROXINE SODIUM
     Dates: start: 20170303
  164. EUTHYROX [Concomitant]
     Active Substance: LEVOTHYROXINE SODIUM
     Dosage: ONGOING = NOT CHECKED
     Dates: start: 20170303, end: 20210615
  165. EUTHYROX [Concomitant]
     Active Substance: LEVOTHYROXINE SODIUM
  166. LACTULOSE [Concomitant]
     Active Substance: LACTULOSE
  167. LACTULOSE [Concomitant]
     Active Substance: LACTULOSE
  168. LACTULOSE [Concomitant]
     Active Substance: LACTULOSE
  169. LACTULOSE [Concomitant]
     Active Substance: LACTULOSE
  170. LACTULOSE [Concomitant]
     Active Substance: LACTULOSE
  171. LACTULOSE [Concomitant]
     Active Substance: LACTULOSE
  172. LACTULOSE [Concomitant]
     Active Substance: LACTULOSE
  173. LACTULOSE [Concomitant]
     Active Substance: LACTULOSE
  174. LACTULOSE [Concomitant]
     Active Substance: LACTULOSE
  175. LACTULOSE [Concomitant]
     Active Substance: LACTULOSE
  176. LACTULOSE [Concomitant]
     Active Substance: LACTULOSE
  177. LACTULOSE [Concomitant]
     Active Substance: LACTULOSE
  178. LACTULOSE [Concomitant]
     Active Substance: LACTULOSE
  179. LACTULOSE [Concomitant]
     Active Substance: LACTULOSE
  180. LACTULOSE [Concomitant]
     Active Substance: LACTULOSE
  181. LACTULOSE [Concomitant]
     Active Substance: LACTULOSE
  182. LACTULOSE [Concomitant]
     Active Substance: LACTULOSE
  183. LACTULOSE [Concomitant]
     Active Substance: LACTULOSE
  184. DROPERIDOL [Concomitant]
     Active Substance: DROPERIDOL
     Indication: Gastrointestinal disorder
     Route: 065
  185. DROPERIDOL [Concomitant]
     Active Substance: DROPERIDOL
     Route: 065
     Dates: start: 20210612, end: 20210617
  186. DROPERIDOL [Concomitant]
     Active Substance: DROPERIDOL
     Dates: start: 20210612, end: 20210617
  187. DROPERIDOL [Concomitant]
     Active Substance: DROPERIDOL
     Dates: start: 20210612, end: 20210617
  188. FENTANYL [Concomitant]
     Active Substance: FENTANYL
  189. FENTANYL [Concomitant]
     Active Substance: FENTANYL
  190. FENTANYL [Concomitant]
     Active Substance: FENTANYL
  191. FENTANYL [Concomitant]
     Active Substance: FENTANYL
  192. FENTANYL [Concomitant]
     Active Substance: FENTANYL
  193. FENTANYL [Concomitant]
     Active Substance: FENTANYL
  194. MORPHINE [Concomitant]
     Active Substance: MORPHINE
     Indication: Dyspnoea
     Dates: start: 20210521, end: 20210616
  195. MORPHINE [Concomitant]
     Active Substance: MORPHINE
     Indication: Dyspnoea
     Route: 065
     Dates: start: 20210616, end: 20210623
  196. MORPHINE [Concomitant]
     Active Substance: MORPHINE
     Dates: start: 20210616, end: 20210623
  197. MORPHINE [Concomitant]
     Active Substance: MORPHINE
     Dates: start: 20210521, end: 20210616
  198. ALPRAZOLAM [Concomitant]
     Active Substance: ALPRAZOLAM
     Indication: Restlessness
     Dates: start: 20210613, end: 20210615
  199. ALPRAZOLAM [Concomitant]
     Active Substance: ALPRAZOLAM
     Dates: start: 20210613, end: 20210615
  200. ALPRAZOLAM [Concomitant]
     Active Substance: ALPRAZOLAM
  201. LORAZEPAM [Concomitant]
     Active Substance: LORAZEPAM
     Indication: Restlessness
     Route: 065
     Dates: start: 20210618, end: 20210623
  202. LORAZEPAM [Concomitant]
     Active Substance: LORAZEPAM
     Dates: start: 20210618, end: 20210623
  203. Temesta [Concomitant]
     Indication: Restlessness
     Dates: start: 20210611, end: 20210621
  204. Temesta [Concomitant]
     Indication: Product used for unknown indication
     Route: 065
     Dates: start: 20210618, end: 20210623
  205. EMEND [Concomitant]
     Active Substance: APREPITANT
     Route: 065
     Dates: start: 20200428, end: 20200430
  206. EMEND [Concomitant]
     Active Substance: APREPITANT
     Route: 065
     Dates: start: 20200428, end: 20200430
  207. SILICON [Concomitant]
     Active Substance: SILICON
     Indication: Skin fissures
     Route: 065
     Dates: start: 20200521, end: 20200602
  208. BETAISODONA [Concomitant]
     Active Substance: POVIDONE-IODINE
     Indication: Skin fissures
     Route: 065
     Dates: start: 20200430, end: 20200515
  209. BETAISODONA [Concomitant]
     Active Substance: POVIDONE-IODINE
     Dates: start: 20200430, end: 20200515
  210. APREPITANT [Concomitant]
     Active Substance: APREPITANT
     Route: 065
     Dates: start: 20200428, end: 20200430
  211. DEXAMETHASONE [Concomitant]
     Active Substance: DEXAMETHASONE
     Indication: Brain oedema
     Route: 065
     Dates: start: 20171007, end: 20171008
  212. DEXAMETHASONE [Concomitant]
     Active Substance: DEXAMETHASONE
     Route: 065
     Dates: start: 20171004, end: 20171006
  213. FUROSEMIDE [Concomitant]
     Active Substance: FUROSEMIDE
     Route: 065
     Dates: start: 20170810, end: 20171213
  214. FUROSEMIDE [Concomitant]
     Active Substance: FUROSEMIDE
     Route: 065
  215. CITRIC ACID [Concomitant]
     Active Substance: CITRIC ACID MONOHYDRATE
     Route: 065
     Dates: start: 20200427, end: 20200428
  216. KCL [Concomitant]
     Active Substance: POTASSIUM CHLORIDE
     Route: 065
  217. KCL [Concomitant]
     Active Substance: POTASSIUM CHLORIDE
     Dates: start: 20170429, end: 20190305
  218. ICHTHAMMOL [Concomitant]
     Active Substance: ICHTHAMMOL
     Route: 065
     Dates: start: 20200430, end: 20200515
  219. ENOXAPARIN SODIUM [Concomitant]
     Active Substance: ENOXAPARIN SODIUM
     Route: 065
     Dates: start: 20170224, end: 20171130
  220. METAMIZOLE SODIUM [Concomitant]
     Active Substance: METAMIZOLE SODIUM
     Route: 065
     Dates: start: 20170329, end: 20180807
  221. RETINOL [Concomitant]
     Active Substance: RETINOL
     Route: 065
  222. OLIVE OIL [Concomitant]
     Active Substance: OLIVE OIL
     Indication: Paronychia
     Route: 065
     Dates: start: 20191002, end: 20200512
  223. OLIVE OIL [Concomitant]
     Active Substance: OLIVE OIL
     Dates: start: 20191002, end: 20200512
  224. METOCLOPRAMIDE HYDROCHLORIDE [Concomitant]
     Active Substance: METOCLOPRAMIDE HYDROCHLORIDE
     Route: 065
  225. LEVOFLOXACIN [Concomitant]
     Active Substance: LEVOFLOXACIN
     Indication: Product used for unknown indication
     Route: 065
     Dates: start: 20200506, end: 20200512
  226. LEVOFLOXACIN [Concomitant]
     Active Substance: LEVOFLOXACIN
     Route: 065
  227. CEFEPIME [Concomitant]
     Active Substance: CEFEPIME HYDROCHLORIDE
     Indication: Product used for unknown indication
     Route: 065
  228. CEFEPIME [Concomitant]
     Active Substance: CEFEPIME HYDROCHLORIDE
     Indication: Product used for unknown indication
     Route: 065
  229. CEFEPIME [Concomitant]
     Active Substance: CEFEPIME HYDROCHLORIDE
     Route: 065
  230. CEFEPIME [Concomitant]
     Active Substance: CEFEPIME HYDROCHLORIDE
     Route: 065
  231. CEFEPIME [Concomitant]
     Active Substance: CEFEPIME HYDROCHLORIDE
     Route: 065
  232. CEFEPIME [Concomitant]
     Active Substance: CEFEPIME HYDROCHLORIDE
     Route: 065
  233. CEFEPIME [Concomitant]
     Active Substance: CEFEPIME HYDROCHLORIDE
     Route: 065
  234. CEFEPIME [Concomitant]
     Active Substance: CEFEPIME HYDROCHLORIDE
     Route: 065
  235. CEFEPIME [Concomitant]
     Active Substance: CEFEPIME HYDROCHLORIDE
     Route: 065
  236. CEFEPIME [Concomitant]
     Active Substance: CEFEPIME HYDROCHLORIDE
     Route: 065
  237. CEFEPIME [Concomitant]
     Active Substance: CEFEPIME HYDROCHLORIDE
     Route: 065
  238. PANTOPRAZOLE SODIUM [Concomitant]
     Active Substance: PANTOPRAZOLE SODIUM
     Indication: Product used for unknown indication
     Dosage: 40 MG, QD
     Dates: start: 20170721, end: 20180327
  239. PANTOPRAZOLE SODIUM [Concomitant]
     Active Substance: PANTOPRAZOLE SODIUM
     Indication: Gastrointestinal disorder
     Dates: start: 20170722, end: 20180327
  240. PANTOPRAZOLE SODIUM [Concomitant]
     Active Substance: PANTOPRAZOLE SODIUM
     Dates: start: 20200506, end: 20200519
  241. PANTOPRAZOLE SODIUM [Concomitant]
     Active Substance: PANTOPRAZOLE SODIUM
     Dates: start: 20210317, end: 20210607
  242. PANTOPRAZOLE SODIUM [Concomitant]
     Active Substance: PANTOPRAZOLE SODIUM
     Dates: start: 20210608, end: 20210610
  243. PANTOPRAZOLE SODIUM [Concomitant]
     Active Substance: PANTOPRAZOLE SODIUM
     Dates: start: 20210618, end: 20210623
  244. FUROSEMIDE [Concomitant]
     Active Substance: FUROSEMIDE
     Indication: Product used for unknown indication
     Route: 065
     Dates: start: 20170611, end: 20170809
  245. FUROSEMIDE [Concomitant]
     Active Substance: FUROSEMIDE
     Route: 065
     Dates: start: 20170713, end: 20170809
  246. FUROSEMIDE [Concomitant]
     Active Substance: FUROSEMIDE
     Route: 065
     Dates: start: 20170810, end: 20171213
  247. FUROSEMIDE [Concomitant]
     Active Substance: FUROSEMIDE
     Route: 065
     Dates: start: 20170810, end: 20190212
  248. DIHYDROCODEINE [Concomitant]
     Active Substance: DIHYDROCODEINE
     Indication: Cough
     Route: 065
     Dates: start: 20210428, end: 20210615
  249. DIHYDROCODEINE [Concomitant]
     Active Substance: DIHYDROCODEINE
     Route: 065
     Dates: start: 20170708, end: 20170709
  250. LEVOFLOXACIN [Concomitant]
     Active Substance: LEVOFLOXACIN
     Indication: Product used for unknown indication
     Route: 065
  251. LEVOFLOXACIN [Concomitant]
     Active Substance: LEVOFLOXACIN
     Route: 065
  252. LEVOFLOXACIN [Concomitant]
     Active Substance: LEVOFLOXACIN
     Route: 065
  253. LEVOFLOXACIN [Concomitant]
     Active Substance: LEVOFLOXACIN
     Route: 065
  254. LEVOFLOXACIN [Concomitant]
     Active Substance: LEVOFLOXACIN
     Route: 065
  255. LEVOFLOXACIN [Concomitant]
     Active Substance: LEVOFLOXACIN
     Route: 065
  256. LEVOFLOXACIN [Concomitant]
     Active Substance: LEVOFLOXACIN
     Route: 065
  257. LEVOFLOXACIN [Concomitant]
     Active Substance: LEVOFLOXACIN
     Route: 065
  258. LEVOFLOXACIN [Concomitant]
     Active Substance: LEVOFLOXACIN
     Route: 065
  259. FILGRASTIM [Concomitant]
     Active Substance: FILGRASTIM
     Indication: Product used for unknown indication
     Dates: start: 20170704, end: 20170708
  260. FILGRASTIM [Concomitant]
     Active Substance: FILGRASTIM
     Indication: Product used for unknown indication
     Route: 065
  261. Xiclav [Concomitant]
     Indication: Product used for unknown indication
     Route: 065
     Dates: start: 20181218, end: 20181222
  262. Xiclav [Concomitant]
     Indication: Product used for unknown indication
  263. TRAZODONE HYDROCHLORIDE [Concomitant]
     Active Substance: TRAZODONE HYDROCHLORIDE
     Indication: Product used for unknown indication
     Route: 065
     Dates: start: 20190731, end: 20190910
  264. TRAZODONE HYDROCHLORIDE [Concomitant]
     Active Substance: TRAZODONE HYDROCHLORIDE
     Indication: Product used for unknown indication
  265. TAZOBACTAM [Concomitant]
     Active Substance: TAZOBACTAM
     Indication: Streptococcal sepsis
     Dates: start: 20200423, end: 20200504
  266. TAZOBACTAM [Concomitant]
     Active Substance: TAZOBACTAM
     Indication: Product used for unknown indication
     Route: 065
     Dates: start: 20170708, end: 20170710
  267. TAZOBACTAM [Concomitant]
     Active Substance: TAZOBACTAM
     Indication: Streptococcal sepsis
  268. TAZOBACTAM [Concomitant]
     Active Substance: TAZOBACTAM
     Indication: Product used for unknown indication
     Dates: start: 20200423, end: 20200504
  269. SALINE [Concomitant]
     Active Substance: SODIUM CHLORIDE
     Indication: Product used for unknown indication
     Route: 065
  270. SALINE [Concomitant]
     Active Substance: SODIUM CHLORIDE
  271. SALINE [Concomitant]
     Active Substance: SODIUM CHLORIDE
  272. SALINE [Concomitant]
     Active Substance: SODIUM CHLORIDE
  273. SALINE [Concomitant]
     Active Substance: SODIUM CHLORIDE
  274. SALINE [Concomitant]
     Active Substance: SODIUM CHLORIDE
  275. SALINE [Concomitant]
     Active Substance: SODIUM CHLORIDE
  276. SALINE [Concomitant]
     Active Substance: SODIUM CHLORIDE
  277. SALINE [Concomitant]
     Active Substance: SODIUM CHLORIDE
  278. SALINE [Concomitant]
     Active Substance: SODIUM CHLORIDE
  279. SALINE [Concomitant]
     Active Substance: SODIUM CHLORIDE
  280. POTASSIUM CHLORIDE [Concomitant]
     Active Substance: POTASSIUM CHLORIDE
     Indication: Product used for unknown indication
     Route: 065
  281. POTASSIUM CHLORIDE [Concomitant]
     Active Substance: POTASSIUM CHLORIDE
  282. POTASSIUM CHLORIDE [Concomitant]
     Active Substance: POTASSIUM CHLORIDE
  283. POTASSIUM CHLORIDE [Concomitant]
     Active Substance: POTASSIUM CHLORIDE
  284. POTASSIUM CHLORIDE [Concomitant]
     Active Substance: POTASSIUM CHLORIDE
  285. POTASSIUM CHLORIDE [Concomitant]
     Active Substance: POTASSIUM CHLORIDE
  286. POTASSIUM CHLORIDE [Concomitant]
     Active Substance: POTASSIUM CHLORIDE
  287. POTASSIUM CHLORIDE [Concomitant]
     Active Substance: POTASSIUM CHLORIDE
  288. POTASSIUM CHLORIDE [Concomitant]
     Active Substance: POTASSIUM CHLORIDE
  289. POTASSIUM CHLORIDE [Concomitant]
     Active Substance: POTASSIUM CHLORIDE
  290. ONDANSETRON HYDROCHLORIDE [Concomitant]
     Active Substance: ONDANSETRON HYDROCHLORIDE
     Indication: Gastrointestinal disorder
     Dates: start: 20170329, end: 20170809
  291. ONDANSETRON HYDROCHLORIDE [Concomitant]
     Active Substance: ONDANSETRON HYDROCHLORIDE
  292. ONDANSETRON HYDROCHLORIDE [Concomitant]
     Active Substance: ONDANSETRON HYDROCHLORIDE
     Dates: start: 20210611, end: 20210616
  293. Motrim [Concomitant]
     Indication: Product used for unknown indication
     Route: 065
     Dates: start: 20190619, end: 20190623
  294. Motrim [Concomitant]
     Indication: Product used for unknown indication
  295. ACETAMINOPHEN [Concomitant]
     Active Substance: ACETAMINOPHEN
     Indication: Product used for unknown indication
     Route: 065
     Dates: start: 20200610, end: 20200616
  296. ACETAMINOPHEN [Concomitant]
     Active Substance: ACETAMINOPHEN
     Indication: Pseudomonal sepsis
     Dates: start: 20210622, end: 20210622
  297. LIDOCAINE [Concomitant]
     Active Substance: LIDOCAINE
     Indication: Product used for unknown indication
     Route: 065
     Dates: start: 20200610, end: 20200610
  298. LASIX [Concomitant]
     Active Substance: FUROSEMIDE
     Indication: Product used for unknown indication
     Route: 065
     Dates: start: 20170611, end: 20170809
  299. LASIX [Concomitant]
     Active Substance: FUROSEMIDE
     Indication: Product used for unknown indication
     Dates: start: 20170713, end: 20170809
  300. LASIX [Concomitant]
     Active Substance: FUROSEMIDE
     Route: 065
     Dates: start: 20170810, end: 20190212
  301. LASIX [Concomitant]
     Active Substance: FUROSEMIDE
     Dates: start: 20170810, end: 20171213
  302. LASIX [Concomitant]
     Active Substance: FUROSEMIDE
     Dates: start: 20240810, end: 20240810
  303. Kalioral [Concomitant]
     Indication: Product used for unknown indication
     Dates: start: 20200427, end: 20200428
  304. Kalioral [Concomitant]
     Indication: Product used for unknown indication
     Route: 065
     Dates: start: 20200608, end: 20200609
  305. BUTYLSCOPOLAMINE BROMIDE [Concomitant]
     Active Substance: BUTYLSCOPOLAMINE BROMIDE
     Indication: Gastrointestinal disorder
     Route: 065
     Dates: start: 20210618, end: 20210618
  306. HYALURONATE SODIUM [Concomitant]
     Active Substance: HYALURONATE SODIUM
     Indication: Product used for unknown indication
     Route: 065
  307. HYALURONATE SODIUM [Concomitant]
     Active Substance: HYALURONATE SODIUM
     Route: 065
  308. HYALURONATE SODIUM [Concomitant]
     Active Substance: HYALURONATE SODIUM
     Route: 065
  309. HYALURONATE SODIUM [Concomitant]
     Active Substance: HYALURONATE SODIUM
     Route: 065
  310. HYALURONATE SODIUM [Concomitant]
     Active Substance: HYALURONATE SODIUM
     Route: 065
  311. HYALURONATE SODIUM [Concomitant]
     Active Substance: HYALURONATE SODIUM
     Route: 065
  312. HYALURONATE SODIUM [Concomitant]
     Active Substance: HYALURONATE SODIUM
     Route: 065
  313. HYALURONATE SODIUM [Concomitant]
     Active Substance: HYALURONATE SODIUM
     Route: 065
  314. HYALURONATE SODIUM [Concomitant]
     Active Substance: HYALURONATE SODIUM
     Route: 065
  315. HYALURONATE SODIUM [Concomitant]
     Active Substance: HYALURONATE SODIUM
     Route: 065
  316. Elomel [Concomitant]
     Indication: Product used for unknown indication
     Route: 065
  317. Elomel [Concomitant]
  318. Elomel [Concomitant]
  319. Elomel [Concomitant]
  320. Elomel [Concomitant]
  321. Elomel [Concomitant]
  322. Elomel [Concomitant]
  323. Elomel [Concomitant]
  324. Elomel [Concomitant]
  325. Elomel [Concomitant]
  326. Elomel [Concomitant]
  327. Elomel [Concomitant]
  328. AMOXICILLIN\CLAVULANATE POTASSIUM [Concomitant]
     Active Substance: AMOXICILLIN\CLAVULANATE POTASSIUM
     Indication: Product used for unknown indication
     Dosage: 1 G
     Route: 065
     Dates: start: 20170711, end: 20170713
  329. AMOXICILLIN\CLAVULANATE POTASSIUM [Concomitant]
     Active Substance: AMOXICILLIN\CLAVULANATE POTASSIUM
     Route: 065
     Dates: start: 20200604, end: 20200605
  330. CALCIUM CARBONATE\VITAMIN D [Concomitant]
     Active Substance: CALCIUM CARBONATE\VITAMIN D
     Indication: Product used for unknown indication
     Route: 065
     Dates: start: 20170203, end: 20210612
  331. AUGMENTIN [Concomitant]
     Active Substance: AMOXICILLIN\CLAVULANATE POTASSIUM
     Indication: Product used for unknown indication
     Route: 065
     Dates: start: 20170710, end: 20170710
  332. AUGMENTIN [Concomitant]
     Active Substance: AMOXICILLIN\CLAVULANATE POTASSIUM
     Indication: Product used for unknown indication
  333. AMPHO-MORONAL [Concomitant]
     Active Substance: AMPHOTERICIN B
     Indication: Product used for unknown indication
     Route: 065
  334. AMPHO-MORONAL [Concomitant]
     Active Substance: AMPHOTERICIN B
  335. AMPHO-MORONAL [Concomitant]
     Active Substance: AMPHOTERICIN B
  336. AMPHO-MORONAL [Concomitant]
     Active Substance: AMPHOTERICIN B
  337. AMPHO-MORONAL [Concomitant]
     Active Substance: AMPHOTERICIN B
  338. AMPHO-MORONAL [Concomitant]
     Active Substance: AMPHOTERICIN B
  339. AMPHO-MORONAL [Concomitant]
     Active Substance: AMPHOTERICIN B
  340. AMPHO-MORONAL [Concomitant]
     Active Substance: AMPHOTERICIN B
  341. AMPHO-MORONAL [Concomitant]
     Active Substance: AMPHOTERICIN B
  342. AMPHO-MORONAL [Concomitant]
     Active Substance: AMPHOTERICIN B
  343. AMPHO-MORONAL [Concomitant]
     Active Substance: AMPHOTERICIN B
  344. AMOXICILLIN\CLAVULANATE POTASSIUM [Concomitant]
     Active Substance: AMOXICILLIN\CLAVULANATE POTASSIUM
     Indication: Product used for unknown indication
     Route: 065
     Dates: start: 20181218, end: 20181222
  345. AMOXICILLIN\CLAVULANATE POTASSIUM [Concomitant]
     Active Substance: AMOXICILLIN\CLAVULANATE POTASSIUM
     Dates: start: 20181218, end: 20181222
  346. AMOXICILLIN [Concomitant]
     Active Substance: AMOXICILLIN
     Indication: Product used for unknown indication
     Route: 065
  347. AMOXICILLIN [Concomitant]
     Active Substance: AMOXICILLIN
  348. AMOXICILLIN [Concomitant]
     Active Substance: AMOXICILLIN
  349. AMOXICILLIN [Concomitant]
     Active Substance: AMOXICILLIN
  350. Actimaris [Concomitant]
     Indication: Product used for unknown indication
     Route: 065
     Dates: start: 20200108, end: 20200128
  351. ALPRAZOLAM [Concomitant]
     Active Substance: ALPRAZOLAM
     Route: 065
  352. ALPRAZOLAM [Concomitant]
     Active Substance: ALPRAZOLAM
  353. ALPRAZOLAM [Concomitant]
     Active Substance: ALPRAZOLAM
  354. ALPRAZOLAM [Concomitant]
     Active Substance: ALPRAZOLAM
  355. ALPRAZOLAM [Concomitant]
     Active Substance: ALPRAZOLAM
  356. ALPRAZOLAM [Concomitant]
     Active Substance: ALPRAZOLAM
  357. LOVENOX [Concomitant]
     Active Substance: ENOXAPARIN SODIUM
     Dosage: 40 MG, QD
     Route: 065
     Dates: start: 20170224, end: 20171130
  358. Novalgin [Concomitant]
     Dates: start: 20210608, end: 20210615
  359. Novalgin [Concomitant]
     Dates: start: 20210618, end: 20210618

REACTIONS (23)
  - Metastases to lymph nodes [Not Recovered/Not Resolved]
  - Metastases to central nervous system [Not Recovered/Not Resolved]
  - Varicose vein [Not Recovered/Not Resolved]
  - Skin fissures [Recovered/Resolved]
  - Vascular device infection [Recovered/Resolved]
  - Nail bed inflammation [Not Recovered/Not Resolved]
  - Restlessness [Not Recovered/Not Resolved]
  - Pleural effusion [Recovered/Resolved]
  - Paronychia [Recovered/Resolved]
  - Nasal mucosal disorder [Recovered/Resolved]
  - Eczema [Not Recovered/Not Resolved]
  - Candida infection [Recovered/Resolved]
  - C-reactive protein increased [Not Recovered/Not Resolved]
  - Streptococcal sepsis [Recovered/Resolved]
  - Pseudomonal sepsis [Recovered/Resolved]
  - Sepsis [Recovered/Resolved]
  - Brain oedema [Not Recovered/Not Resolved]
  - Fatigue [Recovered/Resolved]
  - Back pain [Recovered/Resolved]
  - Vomiting [Recovered/Resolved]
  - Nausea [Recovered/Resolved]
  - Off label use [Unknown]
  - Intentional product use issue [Unknown]

NARRATIVE: CASE EVENT DATE: 20170921
